FAERS Safety Report 7823587-5 (Version None)
Quarter: 2011Q4

REPORT INFORMATION
  Report Type: 
  Country: None (occurrence: None)
  Receive Date: 20111019
  Receipt Date: 20111014
  Transmission Date: 20120403
  Serious: Yes (Other)
  Sender: FDA-Public Use
  Company Number: DE-PFIZER INC-2011226778

PATIENT
  Age: 54 Year
  Sex: Female
  Weight: 78 kg

DRUGS (1)
  1. RELPAX [Suspect]
     Indication: MIGRAINE
     Dosage: OCCASSIONALLY

REACTIONS (3)
  - INTRACRANIAL VENOUS SINUS THROMBOSIS [None]
  - SUBARACHNOID HAEMORRHAGE [None]
  - CAROTID ARTERY ANEURYSM [None]
